FAERS Safety Report 9774467 (Version 2)
Quarter: 2013Q4

REPORT INFORMATION
  Report Type: Report from Study
  Country: FR (occurrence: FR)
  Receive Date: 20131220
  Receipt Date: 20131220
  Transmission Date: 20140711
  Serious: Yes (Hospitalization, Other)
  Sender: FDA-Public Use
  Company Number: FR-009507513-1309FRA011767

PATIENT
  Age: 60 Year
  Sex: Male
  Weight: 76 kg

DRUGS (10)
  1. BOCEPREVIR [Suspect]
     Indication: HEPATITIS C
     Dosage: 2400 MG, UNK
     Route: 048
     Dates: start: 20130828
  2. COPEGUS [Suspect]
     Indication: HEPATITIS C
     Dosage: 1800 MG, UNK
     Route: 048
     Dates: start: 20130731
  3. COPEGUS [Suspect]
     Dosage: 600 MG, QD
  4. PEGASYS [Suspect]
     Indication: HEPATITIS C
     Dosage: 135 MICROGRAM, QW
     Route: 058
     Dates: start: 20130731
  5. ACETAMINOPHEN [Concomitant]
     Indication: PAIN
     Dosage: 500 MG, PRN
     Dates: start: 20130731
  6. ACETAMINOPHEN [Concomitant]
     Indication: PYREXIA
  7. TADENAN [Concomitant]
     Indication: HYPERTONIC BLADDER
     Dosage: 100 MG, QD
     Dates: start: 20130424
  8. OGASTORO [Concomitant]
     Indication: PROPHYLAXIS
     Dosage: 30 MG, QD
     Dates: start: 201305
  9. AVLOCARDYL [Concomitant]
     Indication: GASTROOESOPHAGEAL REFLUX PROPHYLAXIS
     Dosage: 160 MG, QD
     Dates: start: 20130502
  10. NEORECORMON [Concomitant]
     Dosage: 30000 IU, QW

REACTIONS (3)
  - Hepatocellular carcinoma [Unknown]
  - Therapeutic embolisation [Unknown]
  - Gamma-glutamyltransferase increased [Unknown]
